FAERS Safety Report 11807705 (Version 1)
Quarter: 2015Q4

REPORT INFORMATION
  Report Type: Report from Study
  Country: BR (occurrence: BR)
  Receive Date: 20151207
  Receipt Date: 20151207
  Transmission Date: 20160305
  Serious: Yes (Death, Disabling, Other)
  Sender: FDA-Public Use
  Company Number: BR-ABBVIE-15K-020-1513647-00

PATIENT
  Sex: Female

DRUGS (1)
  1. HUMIRA [Suspect]
     Active Substance: ADALIMUMAB
     Indication: RHEUMATOID ARTHRITIS
     Route: 058
     Dates: start: 20131106, end: 201401

REACTIONS (5)
  - Blindness [Unknown]
  - Gastric haemorrhage [Fatal]
  - Photopsia [Unknown]
  - Intestinal perforation [Fatal]
  - Retinal disorder [Unknown]
